FAERS Safety Report 6866891-X (Version None)
Quarter: 2010Q3

REPORT INFORMATION
  Report Type: 
  Country: None (occurrence: None)
  Receive Date: 20100721
  Receipt Date: 20100721
  Transmission Date: 20110219
  Serious: Yes (Other)
  Sender: FDA-Public Use
  Company Number: None

PATIENT
  Sex: Female
  Weight: 49.8957 kg

DRUGS (1)
  1. BONIVA [Suspect]
     Indication: OSTEOPENIA
     Dosage: 1 TABLET = 168.75MG IBANDRONATE MONOSODIUM MONOHYDRATE
     Dates: start: 20070601, end: 20090601

REACTIONS (1)
  - BONE RESORPTION TEST ABNORMAL [None]
